FAERS Safety Report 15300220 (Version 2)
Quarter: 2018Q3

REPORT INFORMATION
  Report Type: Spontaneous
  Country: US (occurrence: US)
  Receive Date: 20180821
  Receipt Date: 20180830
  Transmission Date: 20181010
  Serious: No
  Sender: FDA-Public Use
  Company Number: US-PFIZER INC-2018334020

PATIENT
  Age: 39 Year
  Sex: Female

DRUGS (2)
  1. METHOTREXATE SODIUM. [Suspect]
     Active Substance: METHOTREXATE SODIUM
     Dosage: 10 MG, WEEKLY
  2. METHOTREXATE SODIUM. [Suspect]
     Active Substance: METHOTREXATE SODIUM
     Dosage: 20 MG, WEEKLY

REACTIONS (6)
  - Joint swelling [Recovering/Resolving]
  - Upper respiratory tract infection [Unknown]
  - Mouth ulceration [Unknown]
  - Musculoskeletal stiffness [Not Recovered/Not Resolved]
  - Cough [Unknown]
  - Dermatitis psoriasiform [Unknown]
